FAERS Safety Report 21117216 (Version 3)
Quarter: 2025Q1

REPORT INFORMATION
  Report Type: Report from Study
  Country: IT (occurrence: IT)
  Receive Date: 20220722
  Receipt Date: 20250328
  Transmission Date: 20250409
  Serious: Yes (Hospitalization)
  Sender: AUROBINDO
  Company Number: IT-ITALFARMACO-2022-000819

PATIENT

DRUGS (2)
  1. VENLAFAXINE [Interacting]
     Active Substance: VENLAFAXINE HYDROCHLORIDE
     Indication: Major depression
     Route: 065
  2. PALIPERIDONE [Interacting]
     Active Substance: PALIPERIDONE
     Indication: Major depression
     Dosage: 6 MILLIGRAM, ONCE A DAY(6 MILLIGRAM (0.5) , DAILY)
     Route: 065

REACTIONS (2)
  - Drug interaction [Unknown]
  - Muscle rigidity [Unknown]
